FAERS Safety Report 16395311 (Version 1)
Quarter: 2019Q2

REPORT INFORMATION
  Report Type: Spontaneous
  Country: ES (occurrence: ES)
  Receive Date: 20190605
  Receipt Date: 20190605
  Transmission Date: 20190711
  Serious: Yes (Other)
  Sender: FDA-Public Use
  Company Number: ES-MYLANLABS-M-EU-2010120287

PATIENT
  Age: 79 Year
  Sex: Female

DRUGS (1)
  1. ZOLPIDEM [Suspect]
     Active Substance: ZOLPIDEM\ZOLPIDEM TARTRATE
     Indication: INSOMNIA
     Dosage: 10 MILLIGRAM, QD(BEFORE BEDTIME)
     Route: 048

REACTIONS (4)
  - Fall [Unknown]
  - Amnesia [Recovered/Resolved]
  - Weight increased [Recovered/Resolved]
  - Sleep-related eating disorder [Recovered/Resolved]
